FAERS Safety Report 6093849-3 (Version None)
Quarter: 2009Q1

REPORT INFORMATION
  Report Type: 
  Country: None (occurrence: None)
  Receive Date: 20090226
  Receipt Date: 20090220
  Transmission Date: 20090719
  Serious: Yes (Hospitalization)
  Sender: FDA-Public Use
  Company Number: US-ASTRAZENECA-2009UW04870

PATIENT
  Age: 54 Year
  Sex: Male
  Weight: 68 kg

DRUGS (3)
  1. CRESTOR [Suspect]
     Indication: BLOOD CHOLESTEROL INCREASED
     Route: 048
     Dates: start: 20090123
  2. INDOMETHACIN [Concomitant]
  3. ASOFIX [Concomitant]

REACTIONS (2)
  - FLATULENCE [None]
  - HERNIA [None]
